FAERS Safety Report 16100577 (Version 1)
Quarter: 2019Q1

REPORT INFORMATION
  Report Type: Spontaneous
  Country: US (occurrence: US)
  Receive Date: 20190321
  Receipt Date: 20190321
  Transmission Date: 20190418
  Serious: No
  Sender: FDA-Public Use
  Company Number: US-009507513-1903USA006678

PATIENT
  Age: 28 Year
  Sex: Female
  Weight: 88.89 kg

DRUGS (1)
  1. NEXPLANON [Suspect]
     Active Substance: ETONOGESTREL
     Indication: CONTRACEPTION
     Dosage: 1 IMPLANT, UNK
     Route: 059
     Dates: start: 20181204

REACTIONS (5)
  - Implant site fibrosis [Unknown]
  - Device expulsion [Not Recovered/Not Resolved]
  - Medical device site hyperkeratosis [Unknown]
  - Implant site pustules [Unknown]
  - Discomfort [Unknown]

NARRATIVE: CASE EVENT DATE: 2019
